FAERS Safety Report 22200580 (Version 2)
Quarter: 2023Q2

REPORT INFORMATION
  Report Type: Report from Study
  Country: GB (occurrence: None)
  Receive Date: 20230412
  Receipt Date: 20230419
  Transmission Date: 20230721
  Serious: Yes (Hospitalization)
  Sender: FDA-Public Use
  Company Number: GB-ROCHE-3323870

PATIENT
  Age: 66 Year
  Sex: Male

DRUGS (2)
  1. IPATASERTIB [Suspect]
     Active Substance: IPATASERTIB
     Indication: Lung adenocarcinoma
     Dosage: DATE OF MOST RECENT DOSE PRIOR TO EVENT 29/MAR/2023
     Route: 048
     Dates: start: 20220321
  2. ATEZOLIZUMAB [Suspect]
     Active Substance: ATEZOLIZUMAB
     Indication: Lung adenocarcinoma
     Dosage: MOST RECENT DOSE PRIOR TO EVENT 09/MAR/2023
     Route: 041
     Dates: start: 20220321

REACTIONS (1)
  - Oesophageal ulcer [Not Recovered/Not Resolved]

NARRATIVE: CASE EVENT DATE: 20230330
